FAERS Safety Report 24985085 (Version 2)
Quarter: 2025Q3

REPORT INFORMATION
  Report Type: Report from Study
  Country: EU (occurrence: EU)
  Receive Date: 20250219
  Receipt Date: 20250819
  Transmission Date: 20251021
  Serious: Yes (Hospitalization, Other)
  Sender: TAKEDA
  Company Number: EU-TAKEDA-2025TUS016680

PATIENT
  Age: 38 Year
  Sex: Male

DRUGS (2)
  1. VEDOLIZUMAB [Suspect]
     Active Substance: VEDOLIZUMAB
     Indication: Colitis ulcerative
  2. VEDOLIZUMAB [Suspect]
     Active Substance: VEDOLIZUMAB

REACTIONS (6)
  - Colitis ulcerative [Recovering/Resolving]
  - Subcutaneous abscess [Unknown]
  - Weight decreased [Recovering/Resolving]
  - Scratch [Unknown]
  - Folliculitis [Unknown]
  - Asthenia [Unknown]

NARRATIVE: CASE EVENT DATE: 20250201
